FAERS Safety Report 4350482-9 (Version None)
Quarter: 2004Q2

REPORT INFORMATION
  Report Type: 
  Country: None (occurrence: None)
  Receive Date: 20040430
  Receipt Date: 20040421
  Transmission Date: 20050107
  Serious: Yes (Hospitalization)
  Sender: FDA-Public Use
  Company Number: PHRM2004FR01600

PATIENT
  Age: 51 Year
  Sex: Male

DRUGS (2)
  1. AREDIA [Suspect]
     Indication: METASTASES TO BONE
     Route: 042
     Dates: start: 20031203, end: 20040104
  2. 5-FU + CISPLATIN [Suspect]
     Indication: METASTASES TO BONE
     Route: 042
     Dates: start: 20031013, end: 20040104

REACTIONS (2)
  - CYANOSIS [None]
  - PAIN IN EXTREMITY [None]
